FAERS Safety Report 6828118-4 (Version None)
Quarter: 2010Q3

REPORT INFORMATION
  Report Type: 
  Country: None (occurrence: None)
  Receive Date: 20100709
  Receipt Date: 20070131
  Transmission Date: 20110219
  Serious: No
  Sender: FDA-Public Use
  Company Number: US-PFIZER INC-2007009262

PATIENT
  Sex: Male
  Weight: 30.84 kg

DRUGS (3)
  1. CHANTIX [Suspect]
     Indication: SMOKING CESSATION THERAPY
     Route: 048
     Dates: start: 20070128
  2. GOLD SEAL ANTISEPTIC POWDER [Concomitant]
     Indication: ABSCESS ORAL
     Route: 048
  3. ACETYLSALICYLIC ACID [Concomitant]
     Route: 048

REACTIONS (2)
  - DYSPEPSIA [None]
  - HEADACHE [None]
